FAERS Safety Report 15491152 (Version 2)
Quarter: 2018Q4

REPORT INFORMATION
  Report Type: Spontaneous
  Country: CA (occurrence: CA)
  Receive Date: 20181012
  Receipt Date: 20181106
  Transmission Date: 20190205
  Serious: Yes (Other)
  Sender: FDA-Public Use
  Company Number: CA-OCTA-NGAM13018CA

PATIENT
  Age: 66 Year
  Sex: Male

DRUGS (1)
  1. PANZYGA [Suspect]
     Active Substance: HUMAN IMMUNOGLOBULIN G
     Indication: IMMUNE THROMBOCYTOPENIC PURPURA
     Dosage: 30 G ON 22-MAY-2018, 35 G ON 03-JUN-2018
     Route: 042
     Dates: start: 20180522, end: 20180603

REACTIONS (5)
  - Haemoglobin decreased [Recovered/Resolved]
  - Hepatitis B core antibody positive [Recovered/Resolved]
  - Anti A antibody positive [Recovered/Resolved]
  - Transfusion reaction [Recovered/Resolved]
  - Seroconversion test positive [Recovered/Resolved]

NARRATIVE: CASE EVENT DATE: 20180603
